FAERS Safety Report 7631283-2 (Version None)
Quarter: 2011Q3

REPORT INFORMATION
  Report Type: 
  Country: None (occurrence: None)
  Receive Date: 20110725
  Receipt Date: 20110711
  Transmission Date: 20111222
  Serious: Yes (Hospitalization, Other)
  Sender: FDA-Public Use
  Company Number: SE-US-EMD SERONO, INC.-7060881

PATIENT
  Sex: Female

DRUGS (8)
  1. REBIF [Suspect]
     Indication: MULTIPLE SCLEROSIS
     Dates: start: 20020101, end: 20030101
  2. REBIF [Suspect]
     Route: 058
     Dates: start: 20101001
  3. OXASCAND [Concomitant]
  4. ALVEDAN [Concomitant]
  5. IMOVANE [Concomitant]
  6. REBIF [Suspect]
     Dates: start: 20070101, end: 20090101
  7. ACETAMINOPHEN W/ CODEINE [Concomitant]
  8. KENTERA [Concomitant]

REACTIONS (3)
  - PULMONARY EMBOLISM [None]
  - PROTEIN S DEFICIENCY [None]
  - DEEP VEIN THROMBOSIS [None]
